FAERS Safety Report 4355530-8 (Version None)
Quarter: 2004Q2

REPORT INFORMATION
  Report Type: 
  Country: None (occurrence: None)
  Receive Date: 20040503
  Receipt Date: 20030725
  Transmission Date: 20050107
  Serious: Yes (Other)
  Sender: FDA-Public Use
  Company Number: US-SHR-03-006096

PATIENT
  Age: 75 Year
  Sex: Male

DRUGS (2)
  1. REFLUDAN [Suspect]
     Indication: HEPARIN-INDUCED THROMBOCYTOPENIA
     Dosage: 3 MG/HOUR TO .2MG/HR
     Dates: start: 20030415, end: 20030417
  2. COUMADIN [Suspect]
     Dosage: 5MG THEN 2.5MG
     Dates: start: 20030415

REACTIONS (2)
  - ACTIVATED PARTIAL THROMBOPLASTIN TIME PROLONGED [None]
  - PROTHROMBIN TIME PROLONGED [None]
